FAERS Safety Report 17020824 (Version 1)
Quarter: 2019Q4

REPORT INFORMATION
  Report Type: Spontaneous
  Country: US (occurrence: US)
  Receive Date: 20191112
  Receipt Date: 20191112
  Transmission Date: 20200122
  Serious: Yes (Life-Threatening, Hospitalization)
  Sender: FDA-Public Use
  Company Number: US-MYLANLABS-2019M1105985

PATIENT
  Age: 12 Year
  Sex: Female

DRUGS (1)
  1. DIPHENHYDRAMINE. [Suspect]
     Active Substance: DIPHENHYDRAMINE
     Indication: PRODUCT USED FOR UNKNOWN INDICATION
     Dosage: 147MG/KG
     Route: 048

REACTIONS (5)
  - Cardiovascular disorder [Recovering/Resolving]
  - Overdose [Unknown]
  - Seizure [Unknown]
  - Anticholinergic syndrome [Recovering/Resolving]
  - Toxicity to various agents [Unknown]
